FAERS Safety Report 26116163 (Version 2)
Quarter: 2025Q4

REPORT INFORMATION
  Report Type: Spontaneous
  Country: AU (occurrence: AU)
  Receive Date: 20251203
  Receipt Date: 20251204
  Transmission Date: 20260119
  Serious: Yes (Death, Hospitalization, Other)
  Sender: Kenvue
  Company Number: AU-KENVUE-20251109676

PATIENT

DRUGS (1)
  1. ACETAMINOPHEN [Suspect]
     Active Substance: ACETAMINOPHEN
     Indication: Product used for unknown indication
     Dosage: UNK
     Route: 065

REACTIONS (2)
  - Multiple organ dysfunction syndrome [Fatal]
  - Overdose [Fatal]
